FAERS Safety Report 15849399 (Version 1)
Quarter: 2019Q1

REPORT INFORMATION
  Report Type: Spontaneous
  Country: US (occurrence: US)
  Receive Date: 20190121
  Receipt Date: 20190121
  Transmission Date: 20190417
  Serious: No
  Sender: FDA-Public Use
  Company Number: US-BAUSCH-BL-2018-000353

PATIENT
  Sex: Male

DRUGS (1)
  1. DHE (DIHYDROERGOTAMINE MESILATE) [Suspect]
     Active Substance: DIHYDROERGOTAMINE MESYLATE
     Indication: MIGRAINE
     Dosage: (FOR 2-3 YEARS)
     Route: 045

REACTIONS (3)
  - Product quality issue [Unknown]
  - Device malfunction [None]
  - Drug ineffective [Unknown]
